FAERS Safety Report 6388926-3 (Version None)
Quarter: 2009Q4

REPORT INFORMATION
  Report Type: 
  Country: None (occurrence: None)
  Receive Date: 20091001
  Receipt Date: 20090923
  Transmission Date: 20100525
  Serious: Yes (Death)
  Sender: FDA-Public Use
  Company Number: FR-1170923

PATIENT
  Age: 1 Month
  Sex: Female

DRUGS (5)
  1. ATROPINE SULFATE [Suspect]
     Dosage: OPHTHALMIC
     Route: 047
     Dates: start: 20090805, end: 20090805
  2. FERROSTRANE (SODIUM FEREDETATE) [Concomitant]
  3. LEUCOVORIN CALCIUM [Concomitant]
  4. VITAMINE K (MENADIONE) [Concomitant]
  5. UVESTEROL (UVESTEROL) [Concomitant]

REACTIONS (9)
  - COLITIS ULCERATIVE [None]
  - ENTEROCOLITIS [None]
  - INFECTION [None]
  - INTESTINAL ISCHAEMIA [None]
  - MALAISE [None]
  - MYDRIASIS [None]
  - OXYGEN SATURATION DECREASED [None]
  - PETECHIAE [None]
  - SUBILEUS [None]
